FAERS Safety Report 8965386 (Version 1)
Quarter: 2012Q4

REPORT INFORMATION
  Report Type: 
  Country: UA (occurrence: UA)
  Receive Date: 20121214
  Receipt Date: 20121214
  Transmission Date: 20130627
  Serious: Yes (Life-Threatening)
  Sender: FDA-Public Use
  Company Number: PHHY2012UA115243

PATIENT
  Age: 38 Year
  Sex: Female

DRUGS (1)
  1. RETARPEN [Suspect]
     Indication: RHEUMATIC HEART DISEASE
     Dosage: 2400000 IU, UNK
     Route: 030
     Dates: start: 20080324, end: 20080324

REACTIONS (7)
  - Defaecation urgency [Recovered/Resolved]
  - Hyperaemia [Recovered/Resolved]
  - Labia enlarged [Recovered/Resolved]
  - Asphyxia [Recovered/Resolved]
  - Syncope [Recovered/Resolved]
  - Vomiting [Recovered/Resolved]
  - Blood pressure decreased [Recovered/Resolved]
